FAERS Safety Report 4569288-0 (Version None)
Quarter: 2005Q1

REPORT INFORMATION
  Report Type: 
  Country: None (occurrence: None)
  Receive Date: 20050203
  Receipt Date: 20050125
  Transmission Date: 20050727
  Serious: Yes (Disabling)
  Sender: FDA-Public Use
  Company Number: US-MERCK-0501USA03944

PATIENT
  Age: 80 Year
  Sex: Female

DRUGS (8)
  1. ZOCOR [Concomitant]
     Route: 065
  2. LIPITOR [Concomitant]
     Route: 065
  3. PLENDIL [Concomitant]
     Route: 065
  4. PRINIVIL [Concomitant]
     Route: 065
  5. HYDROCHLOROTHIAZIDE [Concomitant]
     Route: 065
  6. TOPROL-XL [Concomitant]
     Route: 065
  7. ASPIRIN [Concomitant]
     Route: 065
  8. VIOXX [Suspect]
     Indication: ARTHRITIS
     Route: 048
     Dates: start: 20021101, end: 20030901

REACTIONS (2)
  - BLINDNESS UNILATERAL [None]
  - OCULAR VASCULAR DISORDER [None]
